FAERS Safety Report 14061213 (Version 2)
Quarter: 2017Q4

REPORT INFORMATION
  Report Type: Spontaneous
  Country: US (occurrence: US)
  Receive Date: 20171009
  Receipt Date: 20171108
  Transmission Date: 20180321
  Serious: Yes (Other)
  Sender: FDA-Public Use
  Company Number: US-BEH-2017084072

PATIENT
  Age: 58 Year
  Sex: Female
  Weight: 45.35 kg

DRUGS (15)
  1. CELEBREX [Concomitant]
     Active Substance: CELECOXIB
  2. RITALIN [Concomitant]
     Active Substance: METHYLPHENIDATE HYDROCHLORIDE
  3. NEXIUM [Concomitant]
     Active Substance: ESOMEPRAZOLE MAGNESIUM
  4. HIZENTRA [Suspect]
     Active Substance: HUMAN IMMUNOGLOBULIN G
     Dosage: UNK
     Route: 058
  5. LUNESTA [Concomitant]
     Active Substance: ESZOPICLONE
  6. TOPAMAX [Concomitant]
     Active Substance: TOPIRAMATE
  7. HIZENTRA [Suspect]
     Active Substance: HUMAN IMMUNOGLOBULIN G
     Dosage: UNK
     Route: 058
  8. SENNA                              /00142201/ [Concomitant]
     Active Substance: SENNA LEAF
  9. LACTULOSE. [Concomitant]
     Active Substance: LACTULOSE
  10. AMITIZA [Concomitant]
     Active Substance: LUBIPROSTONE
  11. CIPRO [Concomitant]
     Active Substance: CIPROFLOXACIN HYDROCHLORIDE
  12. MORPHINE SULFATE. [Concomitant]
     Active Substance: MORPHINE SULFATE
  13. HIZENTRA [Suspect]
     Active Substance: HUMAN IMMUNOGLOBULIN G
     Indication: IMMUNODEFICIENCY COMMON VARIABLE
     Dosage: 10 G, QW
     Route: 058
     Dates: start: 20141013
  14. PROZAC [Concomitant]
     Active Substance: FLUOXETINE HYDROCHLORIDE
  15. SEROQUEL [Concomitant]
     Active Substance: QUETIAPINE FUMARATE

REACTIONS (4)
  - Renal neoplasm [Unknown]
  - Renal disorder [Unknown]
  - Nephrolithiasis [Unknown]
  - Renal cyst [Unknown]

NARRATIVE: CASE EVENT DATE: 2016
